FAERS Safety Report 17728507 (Version 1)
Quarter: 2020Q2

REPORT INFORMATION
  Report Type: Spontaneous
  Country: US (occurrence: US)
  Receive Date: 20200429
  Receipt Date: 20200429
  Transmission Date: 20200714
  Serious: Yes (Other)
  Sender: FDA-Public Use
  Company Number: None

PATIENT
  Sex: Female

DRUGS (22)
  1. OCALIVA [Suspect]
     Active Substance: OBETICHOLIC ACID
     Indication: PRIMARY BILIARY CHOLANGITIS
     Route: 048
     Dates: start: 20171102
  2. LEVOTHYROXIN [Concomitant]
     Active Substance: LEVOTHYROXINE
  3. MAG OXIDE [Concomitant]
     Active Substance: MAGNESIUM OXIDE
  4. VITAMIN D [Concomitant]
     Active Substance: VITAMIN D NOS
  5. IBUPROFEN. [Concomitant]
     Active Substance: IBUPROFEN
  6. POT CL MICRO [Concomitant]
  7. ASPIRIN. [Concomitant]
     Active Substance: ASPIRIN
  8. CLOPIDOGREL [Concomitant]
     Active Substance: CLOPIDOGREL BISULFATE
  9. FEXOFENADINE [Concomitant]
     Active Substance: FEXOFENADINE HYDROCHLORIDE
  10. HYDROXYCO/APAP [Concomitant]
  11. OXYCODONE [Concomitant]
     Active Substance: OXYCODONE
  12. SOTALOL HCL [Concomitant]
     Active Substance: SOTALOL
  13. NYSTOP [Concomitant]
     Active Substance: NYSTATIN
  14. TRAZODONE [Concomitant]
     Active Substance: TRAZODONE HYDROCHLORIDE
  15. AMOXICILLIN. [Concomitant]
     Active Substance: AMOXICILLIN
  16. BUSPIRONE [Concomitant]
     Active Substance: BUSPIRONE HYDROCHLORIDE
  17. DOXEPIN HCL [Concomitant]
     Active Substance: DOXEPIN HYDROCHLORIDE
  18. KETOCONAZOLE. [Concomitant]
     Active Substance: KETOCONAZOLE
  19. MIRTAZAPINE. [Concomitant]
     Active Substance: MIRTAZAPINE
  20. ASPIRIN. [Concomitant]
     Active Substance: ASPIRIN
  21. NORTRIPTYLIN [Concomitant]
     Active Substance: NORTRIPTYLINE
  22. FENOFIBRATE. [Concomitant]
     Active Substance: FENOFIBRATE

REACTIONS (1)
  - Liver disorder [None]
